FAERS Safety Report 26007540 (Version 1)
Quarter: 2025Q4

REPORT INFORMATION
  Report Type: Spontaneous
  Country: US (occurrence: None)
  Receive Date: 20251106
  Receipt Date: 20251106
  Transmission Date: 20260117
  Serious: Yes (Hospitalization)
  Sender: FDA-CTU
  Company Number: None

PATIENT
  Sex: Female

DRUGS (2)
  1. XCOPRI [Suspect]
     Active Substance: CENOBAMATE
     Indication: Epilepsy
     Dosage: 200 MG DAILY ORAL
     Route: 048
     Dates: start: 20241209
  2. XCOPRI [Concomitant]
     Active Substance: CENOBAMATE
     Dates: start: 20241209

REACTIONS (2)
  - Seizure [None]
  - Concussion [None]
